FAERS Safety Report 5138653-5 (Version None)
Quarter: 2006Q4

REPORT INFORMATION
  Report Type: 
  Country: None (occurrence: None)
  Receive Date: 20061026
  Receipt Date: 20061026
  Transmission Date: 20070319
  Serious: Yes (Hospitalization, Other)
  Sender: FDA-Public Use
  Company Number: None

PATIENT
  Age: 87 Year
  Sex: Male
  Weight: 64.9 kg

DRUGS (3)
  1. XIFAXAN [Suspect]
     Indication: CLOSTRIDIUM DIFFICILE COLITIS
     Dosage: 200MG TID PO
     Route: 048
     Dates: start: 20060705, end: 20060709
  2. VANCOMYCIN [Concomitant]
  3. LEVOFLOXACIN [Concomitant]

REACTIONS (1)
  - EOSINOPHILIA [None]
